FAERS Safety Report 8809431 (Version 2)
Quarter: 2012Q4

REPORT INFORMATION
  Report Type: 
  Country: JP (occurrence: JP)
  Receive Date: 20120926
  Receipt Date: 20121009
  Transmission Date: 20130627
  Serious: Yes (Other)
  Sender: FDA-Public Use
  Company Number: JP-ROCHE-1128921

PATIENT
  Age: 33 Year
  Sex: Female

DRUGS (6)
  1. RIVOTRIL [Suspect]
     Indication: TEMPORAL LOBE EPILEPSY
     Dosage: Dosage is uncertain.
     Route: 048
  2. RIVOTRIL [Suspect]
     Indication: DEPRESSION
     Dosage: Dosage is uncertain.
     Route: 048
  3. TOPIRAMATE [Suspect]
     Indication: TEMPORAL LOBE EPILEPSY
     Dosage: Dosage is uncertain.
     Route: 065
  4. TOPIRAMATE [Suspect]
     Indication: DEPRESSION
     Dosage: Dosage is uncertain.
     Route: 065
  5. SODIUM VALPROATE [Suspect]
     Indication: TEMPORAL LOBE EPILEPSY
     Dosage: Dosage is uncertain.
     Route: 065
  6. SODIUM VALPROATE [Suspect]
     Indication: DEPRESSION
     Dosage: Dosage is uncertain.
     Route: 065

REACTIONS (2)
  - Suicidal behaviour [Unknown]
  - Laceration [Unknown]
